FAERS Safety Report 14593220 (Version 2)
Quarter: 2018Q1

REPORT INFORMATION
  Report Type: Spontaneous
  Country: US (occurrence: US)
  Receive Date: 20180302
  Receipt Date: 20180305
  Transmission Date: 20180509
  Serious: Yes (Hospitalization, Other)
  Sender: FDA-Public Use
  Company Number: US-PFIZER INC-2018083631

PATIENT
  Age: 60 Year
  Sex: Female

DRUGS (1)
  1. IBRANCE [Suspect]
     Active Substance: PALBOCICLIB
     Indication: BREAST CANCER
     Dosage: 125 MG, DAILY[FOR 21 DAYS]
     Route: 048
     Dates: start: 20171106, end: 20171126

REACTIONS (3)
  - Pneumonia [Unknown]
  - Pyrexia [Unknown]
  - Neutropenia [Unknown]

NARRATIVE: CASE EVENT DATE: 20171112
